FAERS Safety Report 6403782-2 (Version None)
Quarter: 2009Q4

REPORT INFORMATION
  Report Type: 
  Country: None (occurrence: None)
  Receive Date: 20091016
  Receipt Date: 20091009
  Transmission Date: 20100525
  Serious: Yes (Other)
  Sender: FDA-Public Use
  Company Number: US-JNJFOC-20091003844

PATIENT
  Age: 11 Year
  Sex: Male
  Weight: 39.01 kg

DRUGS (1)
  1. CONCERTA [Suspect]
     Indication: ATTENTION DEFICIT/HYPERACTIVITY DISORDER
     Dosage: 18 MG TO 36 MG EACH DAY
     Route: 048
     Dates: start: 20030101

REACTIONS (5)
  - BODY HEIGHT BELOW NORMAL [None]
  - DECREASED APPETITE [None]
  - DELAYED PUBERTY [None]
  - DEVELOPMENTAL DELAY [None]
  - INAPPROPRIATE SCHEDULE OF DRUG ADMINISTRATION [None]
